FAERS Safety Report 9880720 (Version 3)
Quarter: 2014Q1

REPORT INFORMATION
  Report Type: Spontaneous
  Country: DE (occurrence: DE)
  Receive Date: 20140207
  Receipt Date: 20140317
  Transmission Date: 20141002
  Serious: Yes (Death, Life-Threatening, Hospitalization)
  Sender: FDA-Public Use
  Company Number: DE-ORION CORPORATION ORION PHARMA-ENTC2014-0052

PATIENT
  Age: 67 Year
  Sex: Female
  Weight: 70 kg

DRUGS (27)
  1. STALEVO [Suspect]
     Indication: PARKINSON^S DISEASE
     Dosage: STRENGTH: 100/25/200 MG
     Route: 065
     Dates: start: 201205
  2. STALEVO [Suspect]
     Dosage: STRENGTH: 100/25/200 MG
     Route: 065
     Dates: start: 2013, end: 20131020
  3. STALEVO [Suspect]
     Dosage: STRENGTH: 100/25/200 MG
     Route: 065
     Dates: start: 20131020, end: 201312
  4. STALEVO [Suspect]
     Route: 065
  5. STALEVO [Suspect]
     Dosage: STRENGTH: 50/12.5/200 MG
     Route: 065
     Dates: start: 201312
  6. LEVODOPA [Concomitant]
     Indication: PARKINSON^S DISEASE
     Dosage: STRENGTH: 100/25 MG
     Route: 065
  7. SIFROL [Concomitant]
     Indication: PARKINSON^S DISEASE
     Dosage: STRENGTH: 0.35 MG
     Route: 065
     Dates: start: 1994
  8. SIFROL [Concomitant]
     Dosage: STRENGTH: 0.35 MG
     Route: 065
  9. SIFROL [Concomitant]
     Dosage: 1 X 1.05 MG
     Route: 065
     Dates: start: 20131020, end: 20131210
  10. BIPERIDEN [Concomitant]
     Indication: PARKINSON^S DISEASE
     Dosage: STRENGTH: 2 MG
     Route: 065
     Dates: start: 1994
  11. BIPERIDEN [Concomitant]
     Dosage: STRENGTH: 2 MG
     Route: 065
     Dates: end: 20131020
  12. DOPADURA C [Concomitant]
     Indication: PARKINSON^S DISEASE
     Dosage: 100/25 MG FAST ACTING IN MORNINGS
     Route: 065
     Dates: start: 1999, end: 201310
  13. DOPADURA C RETARD [Concomitant]
     Indication: PARKINSON^S DISEASE
     Dosage: STRENGTH: 100/25 MG
     Route: 065
  14. DOPADURA C RETARD [Concomitant]
     Dosage: STRENGTH: 200/50 MG
     Route: 065
  15. LEVODOPA COMP. B STADA [Concomitant]
     Indication: PARKINSON^S DISEASE
     Dosage: 100/25 MG ADDED IN MORNINGS AND NIGHT
     Route: 065
  16. SEROQUEL [Concomitant]
     Dosage: STRENGTH: 25 MG
     Route: 065
  17. PANTOZOL [Concomitant]
     Route: 065
  18. PANTOZOL [Concomitant]
     Route: 065
  19. FEMARA [Concomitant]
     Route: 065
  20. LISINOPRIL [Concomitant]
     Route: 065
  21. METOPROLOL [Concomitant]
     Route: 065
  22. UNACID [Concomitant]
     Route: 065
  23. UNACID [Concomitant]
     Route: 065
  24. ALLOPURINOL [Concomitant]
     Route: 065
  25. AMPHO MORONAL [Concomitant]
     Dosage: 4 X 1 PIPETTE
     Route: 065
  26. OPTIMA VIT PLUS [Concomitant]
     Route: 065
  27. MADOPAR [Concomitant]
     Route: 065

REACTIONS (9)
  - Myelodysplastic syndrome [Fatal]
  - Pneumonia bacterial [Fatal]
  - Bacterial sepsis [Fatal]
  - Cardiac failure [Fatal]
  - Drug prescribing error [Unknown]
  - Convulsion [Unknown]
  - Musculoskeletal stiffness [Unknown]
  - Immobile [Unknown]
  - Toxicity to various agents [Unknown]
